FAERS Safety Report 20796530 (Version 3)
Quarter: 2022Q2

REPORT INFORMATION
  Report Type: Spontaneous
  Country: SK (occurrence: SK)
  Receive Date: 20220506
  Receipt Date: 20220519
  Transmission Date: 20220721
  Serious: Yes (Other)
  Sender: FDA-Public Use
  Company Number: SK-SUN PHARMACEUTICAL INDUSTRIES LTD-2022RR-332932

PATIENT
  Age: 60 Year
  Sex: Male

DRUGS (7)
  1. GEMCITABINE [Suspect]
     Active Substance: GEMCITABINE
     Indication: Transitional cell carcinoma
     Dosage: 1400 MILLIGRAM, CYCLE
     Route: 042
     Dates: start: 202007
  2. GEMCITABINE [Suspect]
     Active Substance: GEMCITABINE
     Indication: Bladder cancer
     Dosage: UNK, DOSE REDUCED
  3. GEMCITABINE [Suspect]
     Active Substance: GEMCITABINE
     Dosage: 1400 MILLIGRAM
     Route: 042
  4. CISPLATIN [Suspect]
     Active Substance: CISPLATIN
     Indication: Transitional cell carcinoma
     Dosage: 140 MILLIGRAM, CYCLE
     Route: 042
     Dates: start: 202007
  5. CISPLATIN [Suspect]
     Active Substance: CISPLATIN
     Indication: Bladder cancer
     Dosage: UNK, DOSE REDUCED
  6. CISPLATIN [Suspect]
     Active Substance: CISPLATIN
     Dosage: 140 MILLIGRAM
     Route: 042
  7. GRANULOCYTE COLONY-STIMULATING FACTOR NOS [Suspect]
     Active Substance: GRANULOCYTE COLONY-STIMULATING FACTOR NOS
     Indication: Transitional cell carcinoma
     Dosage: UNK
     Route: 065

REACTIONS (2)
  - Haematotoxicity [Unknown]
  - Drug ineffective [Unknown]

NARRATIVE: CASE EVENT DATE: 20200701
